FAERS Safety Report 8892263 (Version 1)
Quarter: 2012Q4

REPORT INFORMATION
  Report Type: 
  Country: US (occurrence: US)
  Receive Date: 20121107
  Receipt Date: 20121107
  Transmission Date: 20130627
  Serious: No
  Sender: FDA-Public Use
  Company Number: US-AMGEN-USASP2011055213

PATIENT
  Age: 44 Year
  Sex: Female
  Weight: 99.77 kg

DRUGS (16)
  1. ENBREL [Suspect]
     Indication: PRODUCT USED FOR UNKNOWN INDICATION
     Dosage: 50 mg, qwk
     Route: 058
  2. VOLTAREN [Concomitant]
     Dosage: 25 mg, UNK
  3. LEVAQUIN [Concomitant]
     Dosage: 25 mg, UNK
  4. METHOTREXATE [Concomitant]
     Dosage: 2.5 mg, UNK
  5. LYRICA [Concomitant]
     Dosage: 50 mg, UNK
  6. OMEPRAZOLE [Concomitant]
     Dosage: 40 mg, UNK
  7. DOXYCYCLINE [Concomitant]
     Dosage: 20 mg, UNK
  8. CYCLOBENZAPRINE [Concomitant]
     Dosage: 5 mg, UNK
  9. WARFARIN [Concomitant]
     Dosage: 1 mg, UNK
  10. CALCIUM 500+D [Concomitant]
  11. TYLENOL [Concomitant]
     Dosage: 500 mg, UNK
  12. LYSINE [Concomitant]
     Dosage: 500 mg, UNK
  13. FOLIC ACID [Concomitant]
     Dosage: 20 mg, UNK
  14. VITAMIN D3 [Concomitant]
  15. CLINDAMYCIN [Concomitant]
     Dosage: 10 mg, UNK
  16. PRENATAL [Concomitant]

REACTIONS (4)
  - Oropharyngeal pain [Unknown]
  - Dysphonia [Unknown]
  - Erythema [Unknown]
  - Fungal infection [Unknown]
